FAERS Safety Report 13302163 (Version 6)
Quarter: 2019Q1

REPORT INFORMATION
  Report Type: Spontaneous
  Country: US (occurrence: US)
  Receive Date: 20170307
  Receipt Date: 20190315
  Transmission Date: 20190417
  Serious: Yes (Other)
  Sender: FDA-Public Use
  Company Number: US-TEVA-745414USA

PATIENT
  Sex: Female

DRUGS (1)
  1. FENTORA [Suspect]
     Active Substance: FENTANYL CITRATE
     Indication: PRODUCT USED FOR UNKNOWN INDICATION
     Route: 065

REACTIONS (10)
  - Weight decreased [Unknown]
  - Product supply issue [Unknown]
  - Feeding disorder [Unknown]
  - Pneumonia [Unknown]
  - Neoplasm malignant [Unknown]
  - Vomiting [Unknown]
  - Decreased appetite [Unknown]
  - Infection [Unknown]
  - Gastrectomy [Unknown]
  - Pain [Unknown]
